FAERS Safety Report 16376727 (Version 2)
Quarter: 2019Q2

REPORT INFORMATION
  Report Type: Spontaneous
  Country: US (occurrence: US)
  Receive Date: 20190531
  Receipt Date: 20190617
  Transmission Date: 20190711
  Serious: Yes (Life-Threatening, Hospitalization, Other)
  Sender: FDA-Public Use
  Company Number: US-GLENMARK PHARMACEUTICALS-2019GMK041445

PATIENT
  Sex: Male

DRUGS (9)
  1. DESMOPRESSIN ACETATE. [Interacting]
     Active Substance: DESMOPRESSIN ACETATE
     Indication: URINARY INCONTINENCE
     Dosage: 0.2 MG, OD (BY MOUTH EVERY BEDTIME)
     Route: 048
  2. LAMOTRIGINE. [Suspect]
     Active Substance: LAMOTRIGINE
     Indication: AFFECTIVE DISORDER
     Dosage: 100 MG, BID (EVERY 12 HOURS)
     Route: 048
  3. PARACETAMOL [Concomitant]
     Active Substance: ACETAMINOPHEN
     Indication: PRODUCT USED FOR UNKNOWN INDICATION
     Dosage: UNK
     Route: 065
  4. MELOXICAM. [Suspect]
     Active Substance: MELOXICAM
     Indication: ARTHRALGIA
     Dosage: UNK
     Route: 065
  5. LAMOTRIGINE. [Suspect]
     Active Substance: LAMOTRIGINE
     Indication: SEIZURE PROPHYLAXIS
  6. CLOZAPINE. [Concomitant]
     Active Substance: CLOZAPINE
     Indication: SCHIZOPHRENIA
     Dosage: 225 MG, OD (225 MG BY MOUTH EVERY MORNING AND 400 MG BY MOUTH EVERY BEDTIME FOR A DECADE)
     Route: 048
  7. CLOZAPINE. [Concomitant]
     Active Substance: CLOZAPINE
     Dosage: 400 MG, OD (225 MG BY MOUTH EVERY MORNING AND 400 MG BY MOUTH EVERY BEDTIME FOR A DECADE)
     Route: 048
  8. FLUOXETINE [Concomitant]
     Active Substance: FLUOXETINE HYDROCHLORIDE
     Indication: AFFECTIVE DISORDER
     Dosage: 10 MG, OD
     Route: 048
  9. MELOXICAM. [Interacting]
     Active Substance: MELOXICAM
     Dosage: 15 MG, OD (POST ADMISSION)
     Route: 048

REACTIONS (6)
  - Water intoxication [Unknown]
  - Generalised tonic-clonic seizure [Recovered/Resolved]
  - Hyponatraemia [Unknown]
  - Product use in unapproved indication [Unknown]
  - Fluid retention [Unknown]
  - Drug interaction [Unknown]
